FAERS Safety Report 23441530 (Version 1)
Quarter: 2024Q1

REPORT INFORMATION
  Report Type: Other
  Country: CA (occurrence: CA)
  Receive Date: 20240125
  Receipt Date: 20240125
  Transmission Date: 20240410
  Serious: Yes (Hospitalization, Other)
  Sender: FDA-Public Use
  Company Number: CA-APOTEX-2023AP009902

PATIENT
  Age: 41 Year
  Sex: Female

DRUGS (4)
  1. NITROFURANTOIN [Suspect]
     Active Substance: NITROFURANTOIN
     Indication: Urinary tract infection
     Dosage: UNK
     Route: 065
  2. METFORMIN [Suspect]
     Active Substance: METFORMIN HYDROCHLORIDE
     Indication: Product used for unknown indication
     Dosage: UNK
     Route: 065
  3. RENFLEXIS [Suspect]
     Active Substance: INFLIXIMAB-ABDA
     Indication: Crohn^s disease
     Dosage: UNK
     Route: 065
  4. RENFLEXIS [Suspect]
     Active Substance: INFLIXIMAB-ABDA
     Dosage: 500 MILLIGRAM (FREQUENCY WAS 1 EVERY 6 WEEKS)
     Route: 065

REACTIONS (13)
  - Anaemia [Recovered/Resolved]
  - Asthenia [Recovered/Resolved]
  - Crohn^s disease [Recovered/Resolved]
  - Nephrolithiasis [Recovered/Resolved]
  - Stress [Recovered/Resolved]
  - Urinary tract infection [Recovered/Resolved]
  - Product use issue [Recovered/Resolved]
  - Brain fog [Not Recovered/Not Resolved]
  - Uterine leiomyoma [Not Recovered/Not Resolved]
  - Product residue present [Not Recovered/Not Resolved]
  - Weight increased [Not Recovered/Not Resolved]
  - Therapeutic response shortened [Not Recovered/Not Resolved]
  - Arthralgia [Recovered/Resolved]
